FAERS Safety Report 9709179 (Version 1)
Quarter: 2013Q4

REPORT INFORMATION
  Report Type: Spontaneous
  Country: US (occurrence: US)
  Receive Date: 20131125
  Receipt Date: 20131125
  Transmission Date: 20140711
  Serious: Yes (Other)
  Sender: FDA-Public Use
  Company Number: US-BAXTER-2013BAX045997

PATIENT
  Age: 66 Year
  Sex: Female

DRUGS (2)
  1. DIANEAL LOW CALCIUM [Suspect]
     Indication: PERITONEAL DIALYSIS
     Route: 033
     Dates: start: 201008
  2. DIANEAL LOW CALCIUM [Suspect]
     Indication: PERITONEAL DIALYSIS
     Route: 033
     Dates: start: 201008

REACTIONS (1)
  - Peritonitis bacterial [Recovering/Resolving]
